FAERS Safety Report 8530868-9 (Version None)
Quarter: 2012Q3

REPORT INFORMATION
  Report Type: 
  Country: None (occurrence: None)
  Receive Date: 20120723
  Receipt Date: 20120716
  Transmission Date: 20120928
  Serious: Yes (Hospitalization)
  Sender: FDA-Public Use
  Company Number: US-ASTRAZENECA-2011SE50190

PATIENT
  Age: 46 Year
  Sex: Female

DRUGS (2)
  1. PRILOSEC [Suspect]
     Route: 048
  2. NEXIUM [Suspect]
     Route: 048

REACTIONS (6)
  - MUSCLE SPASMS [None]
  - FATIGUE [None]
  - DYSPNOEA [None]
  - FALL [None]
  - RHABDOMYOLYSIS [None]
  - ROAD TRAFFIC ACCIDENT [None]
